FAERS Safety Report 23882661 (Version 3)
Quarter: 2024Q3

REPORT INFORMATION
  Report Type: Spontaneous
  Country: DE (occurrence: DE)
  Receive Date: 20240522
  Receipt Date: 20240807
  Transmission Date: 20241016
  Serious: Yes (Congenital Anomaly, Other)
  Sender: AUROBINDO
  Company Number: DE-MYLANLABS-2024M1040347

PATIENT
  Sex: Male
  Weight: 2.9 kg

DRUGS (2)
  1. EMTRICITABINE\TENOFOVIR DISOPROXIL [Suspect]
     Active Substance: EMTRICITABINE\TENOFOVIR DISOPROXIL
     Indication: HIV infection
     Dosage: 445 MILLIGRAM, ONCE A DAY (445 MILLIGRAM, QD)
     Route: 064
     Dates: start: 20231114
  2. TIVICAY [Suspect]
     Active Substance: DOLUTEGRAVIR SODIUM
     Indication: HIV infection
     Dosage: 50 MILLIGRAM, ONCE A DAY (50 MILLIGRAM, QD)
     Route: 064
     Dates: start: 20231114

REACTIONS (4)
  - Atrial septal defect [Unknown]
  - Trisomy 21 [Unknown]
  - Abnormal organ growth [Unknown]
  - Foetal exposure during pregnancy [Unknown]
